FAERS Safety Report 5807084-4 (Version None)
Quarter: 2008Q3

REPORT INFORMATION
  Report Type: 
  Country: None (occurrence: None)
  Receive Date: 20080711
  Receipt Date: 20020618
  Transmission Date: 20090109
  Serious: Yes (Other)
  Sender: FDA-Public Use
  Company Number: US-BAXTER-2007BH009749

PATIENT

DRUGS (1)
  1. HEPARIN SODIUM 1,000 UNITS AND SODIUM CHLORIDE 0.9% [Suspect]
     Indication: INDWELLING CATHETER MANAGEMENT
     Dosage: DOSE UNIT:UNKNOWN
     Route: 013

REACTIONS (3)
  - ESCHAR [None]
  - INJECTION SITE REACTION [None]
  - SKIN EXFOLIATION [None]
